FAERS Safety Report 7752987-7 (Version None)
Quarter: 2011Q3

REPORT INFORMATION
  Report Type: 
  Country: None (occurrence: None)
  Receive Date: 20110915
  Receipt Date: 20110913
  Transmission Date: 20111222
  Serious: Yes (Death, Other)
  Sender: FDA-Public Use
  Company Number: JP-B.I. PHARMACEUTICALS,INC./RIDGEFIELD-2011-BP-21982NB

PATIENT
  Age: 71 Year
  Sex: Male

DRUGS (6)
  1. LOSARTAN POTASSIUM AND HYDROCHLOROTHIAZIDE [Concomitant]
     Route: 065
  2. ALLOPURINOL [Concomitant]
     Route: 065
  3. MIGLITOL [Concomitant]
     Route: 065
  4. UNSPECIFIED DRUG [Concomitant]
     Route: 065
  5. PRADAXA [Suspect]
     Indication: ATRIAL FIBRILLATION
     Dosage: 300 MG
     Route: 048
     Dates: end: 20110911
  6. EPALRESTAT [Concomitant]
     Route: 065

REACTIONS (3)
  - SEPTIC SHOCK [None]
  - NECROTISING COLITIS [None]
  - GASTROINTESTINAL HAEMORRHAGE [None]
